FAERS Safety Report 8548289-1 (Version None)
Quarter: 2012Q3

REPORT INFORMATION
  Report Type: 
  Country: None (occurrence: None)
  Receive Date: 20120719
  Receipt Date: 20120719
  Transmission Date: 20120928
  Serious: No
  Sender: FDA-Public Use
  Company Number: None

PATIENT

DRUGS (5)
  1. ASPIRIN [Concomitant]
  2. ENALAPRIL MALEATE [Concomitant]
  3. PLAVIX [Concomitant]
  4. HEART STENT [Concomitant]
  5. LOVASTATIN [Suspect]

REACTIONS (8)
  - MYALGIA [None]
  - ARTHRALGIA [None]
  - POOR QUALITY SLEEP [None]
  - PNEUMONIA [None]
  - ARTHROPATHY [None]
  - PAIN IN JAW [None]
  - PAIN IN EXTREMITY [None]
  - MOBILITY DECREASED [None]
